FAERS Safety Report 11635928 (Version 8)
Quarter: 2016Q2

REPORT INFORMATION
  Report Type: Report from Study
  Country: US (occurrence: US)
  Receive Date: 20151016
  Receipt Date: 20160509
  Transmission Date: 20160815
  Serious: Yes (Hospitalization, Other)
  Sender: FDA-Public Use
  Company Number: US-AMGEN-USASL2015103786

PATIENT
  Age: 58 Year
  Sex: Female

DRUGS (6)
  1. ENBREL [Suspect]
     Active Substance: ETANERCEPT
     Indication: PSORIASIS
  2. ENBREL [Suspect]
     Active Substance: ETANERCEPT
     Indication: PSORIATIC ARTHROPATHY
     Dosage: UNK
     Route: 065
     Dates: start: 20060101
  3. REMICADE [Suspect]
     Active Substance: INFLIXIMAB
     Indication: PRODUCT USED FOR UNKNOWN INDICATION
     Dosage: UNK
     Route: 065
  4. AMOXICILLIN. [Suspect]
     Active Substance: AMOXICILLIN
     Indication: BRONCHITIS
     Dosage: UNK
     Route: 065
  5. LEVOFLOXACIN. [Suspect]
     Active Substance: LEVOFLOXACIN
     Indication: BRONCHITIS
     Dosage: UNK
     Route: 065
  6. HUMIRA [Suspect]
     Active Substance: ADALIMUMAB
     Indication: PRODUCT USED FOR UNKNOWN INDICATION
     Dosage: UNK
     Route: 065

REACTIONS (48)
  - Cough [Not Recovered/Not Resolved]
  - Sinus congestion [Recovering/Resolving]
  - Neuropathy peripheral [Unknown]
  - Intervertebral disc protrusion [Unknown]
  - Carpal tunnel syndrome [Unknown]
  - Bone pain [Recovering/Resolving]
  - Arthralgia [Unknown]
  - Muscle twitching [Not Recovered/Not Resolved]
  - Peripheral swelling [Unknown]
  - Blood glucose increased [Unknown]
  - Oropharyngeal pain [Unknown]
  - Blister [Unknown]
  - Hyperkeratosis [Unknown]
  - Drug effect incomplete [Unknown]
  - Fatigue [Unknown]
  - Somnolence [Unknown]
  - Joint swelling [Unknown]
  - Skin ulcer [Unknown]
  - Skin wound [Unknown]
  - Vomiting [Unknown]
  - Wound infection [Unknown]
  - Feeling abnormal [Unknown]
  - Pain [Unknown]
  - Dizziness [Unknown]
  - Hypertension [Unknown]
  - Impaired healing [Recovering/Resolving]
  - Pain in extremity [Recovering/Resolving]
  - Musculoskeletal pain [Recovering/Resolving]
  - Spider vein [Unknown]
  - Anaemia [Unknown]
  - Influenza [Unknown]
  - Retinopathy [Unknown]
  - Asthenia [Unknown]
  - Chest discomfort [Unknown]
  - Bronchitis [Unknown]
  - Chronic kidney disease [Unknown]
  - Psoriatic arthropathy [Unknown]
  - Upper respiratory tract infection [Unknown]
  - Malaise [Unknown]
  - Limb discomfort [Unknown]
  - Varicose vein [Unknown]
  - Diarrhoea [Unknown]
  - Osteoarthritis [Unknown]
  - Myocardial infarction [Unknown]
  - Nausea [Unknown]
  - Decreased appetite [Unknown]
  - Insomnia [Unknown]
  - Neurodermatitis [Unknown]

NARRATIVE: CASE EVENT DATE: 2015
